FAERS Safety Report 8553201-5 (Version None)
Quarter: 2012Q3

REPORT INFORMATION
  Report Type: 
  Country: None (occurrence: None)
  Receive Date: 20120731
  Receipt Date: 20120727
  Transmission Date: 20120928
  Serious: Yes (Other)
  Sender: FDA-Public Use
  Company Number: IT-PFIZER INC-2012177166

PATIENT
  Age: 83 Year
  Sex: Female

DRUGS (5)
  1. CARDURA [Concomitant]
     Dosage: UNK
  2. DIDROGYL [Concomitant]
     Dosage: UNK
  3. HYDROCORTISONE 0.05% CREAM [Concomitant]
     Dosage: UNK
  4. EFFEXOR XR [Suspect]
     Indication: DEPRESSION
     Dosage: 37.5 MG, DAILY
     Route: 048
     Dates: start: 20120705, end: 20120714
  5. RAMIPRIL [Concomitant]
     Dosage: UNK

REACTIONS (2)
  - DISORIENTATION [None]
  - HALLUCINATION [None]
